FAERS Safety Report 10680054 (Version 4)
Quarter: 2015Q1

REPORT INFORMATION
  Report Type: Spontaneous
  Country: CN (occurrence: CN)
  Receive Date: 20141229
  Receipt Date: 20150310
  Transmission Date: 20150720
  Serious: Yes (Other)
  Sender: FDA-Public Use
  Company Number: CN-GLAXOSMITHKLINE-CN2014GSK022848

PATIENT
  Sex: Female
  Weight: 57.5 kg

DRUGS (1)
  1. LAMICTAL [Suspect]
     Active Substance: LAMOTRIGINE
     Indication: EPILEPSY
     Dosage: 400 MG, QD
     Route: 048

REACTIONS (5)
  - Exposure during pregnancy [Unknown]
  - Disorientation [Unknown]
  - Loss of consciousness [Unknown]
  - Seizure [Unknown]
  - Somnolence [Unknown]
